FAERS Safety Report 17895187 (Version 1)
Quarter: 2020Q2

REPORT INFORMATION
  Report Type: Spontaneous
  Country: US (occurrence: US)
  Receive Date: 20200615
  Receipt Date: 20200615
  Transmission Date: 20200714
  Serious: No
  Sender: FDA-Public Use
  Company Number: US-AMGEN-USASP2020091766

PATIENT
  Age: 60 Year
  Sex: Female

DRUGS (7)
  1. TREMFYA [Concomitant]
     Active Substance: GUSELKUMAB
     Indication: PSORIASIS
  2. CALCIUM [Concomitant]
     Active Substance: CALCIUM
     Indication: BONE DISORDER
  3. FINACEA [Concomitant]
     Active Substance: AZELAIC ACID
     Indication: ACNE
  4. PROLIA [Suspect]
     Active Substance: DENOSUMAB
     Indication: OSTEOPOROSIS POSTMENOPAUSAL
     Dosage: 60 MILLIGRAM, Q6MO
     Route: 065
     Dates: start: 20200520
  5. TREMFYA [Concomitant]
     Active Substance: GUSELKUMAB
     Indication: ECZEMA
     Dosage: UNK
     Dates: start: 2018
  6. VITAMIN D [COLECALCIFEROL] [Concomitant]
     Active Substance: CHOLECALCIFEROL
     Indication: BONE DISORDER
  7. TRETINOIN. [Concomitant]
     Active Substance: TRETINOIN
     Indication: ACNE

REACTIONS (3)
  - Oral herpes [Unknown]
  - Acne [Unknown]
  - Papule [Unknown]

NARRATIVE: CASE EVENT DATE: 202006
